FAERS Safety Report 10144145 (Version 1)
Quarter: 2014Q2

REPORT INFORMATION
  Report Type: Spontaneous
  Country: CH (occurrence: CH)
  Receive Date: 20140430
  Receipt Date: 20140430
  Transmission Date: 20141212
  Serious: Yes (Other)
  Sender: FDA-Public Use
  Company Number: CH-ASTRAZENECA-2014SE28106

PATIENT
  Age: 66 Year
  Sex: Female
  Weight: 52 kg

DRUGS (5)
  1. CRESTOR [Suspect]
     Indication: HYPERLIPIDAEMIA
     Route: 048
     Dates: start: 201303, end: 201312
  2. TRIATEC [Concomitant]
  3. ASS [Concomitant]
     Dates: end: 201312
  4. NEBILET [Concomitant]
  5. CALCIMAGON D3 [Concomitant]

REACTIONS (3)
  - Eczema nummular [Not Recovered/Not Resolved]
  - Eczema infected [Not Recovered/Not Resolved]
  - Pruritus [Not Recovered/Not Resolved]
